FAERS Safety Report 23533267 (Version 1)
Quarter: 2024Q1

REPORT INFORMATION
  Report Type: Spontaneous
  Country: US (occurrence: None)
  Receive Date: 20240216
  Receipt Date: 20240216
  Transmission Date: 20240410
  Serious: No
  Sender: FDA-Public Use
  Company Number: None

PATIENT
  Age: 39 Year
  Sex: Female

DRUGS (1)
  1. OXBRYTA [Suspect]
     Active Substance: VOXELOTOR
     Indication: Sickle cell disease
     Dosage: FREQUENCY : TWICE A DAY;?
     Route: 048
     Dates: start: 202003

REACTIONS (2)
  - Sickle cell anaemia with crisis [None]
  - Therapy interrupted [None]

NARRATIVE: CASE EVENT DATE: 20240117
